FAERS Safety Report 10323532 (Version 2)
Quarter: 2015Q1

REPORT INFORMATION
  Report Type: Other
  Country: None (occurrence: US)
  Receive Date: 20140720
  Receipt Date: 20150227
  Transmission Date: 20150720
  Serious: Yes (Other)
  Sender: FDA-Public Use
  Company Number: US-GSKPPD-2014GSK027800

PATIENT
  Age: 75 Year

DRUGS (5)
  1. LASIX [Concomitant]
     Active Substance: FUROSEMIDE
  2. VERAPAMIL [Concomitant]
     Active Substance: VERAPAMIL HYDROCHLORIDE
     Dates: end: 200901
  3. LOPRESSOR [Concomitant]
     Active Substance: METOPROLOL TARTRATE
  4. LISINOPRIL. [Concomitant]
     Active Substance: LISINOPRIL
  5. AVANDIA [Suspect]
     Active Substance: ROSIGLITAZONE MALEATE
     Indication: DIABETES MELLITUS
     Dosage: DATES OF AVANDIA USE COULD NOT BE CONFIRMED IN RECORDS REVIEWED.
     Route: 048

REACTIONS (3)
  - Cardiac disorder [Unknown]
  - Tricuspid valve incompetence [Recovered/Resolved]
  - Diastolic dysfunction [Recovered/Resolved]

NARRATIVE: CASE EVENT DATE: 20090105
